FAERS Safety Report 8200478-1 (Version None)
Quarter: 2012Q1

REPORT INFORMATION
  Report Type: 
  Country: None (occurrence: None)
  Receive Date: 20120301
  Receipt Date: 20120224
  Transmission Date: 20120608
  Serious: Yes (Hospitalization, Other)
  Sender: FDA-Public Use
  Company Number: 2012031383

PATIENT
  Age: 76 Year
  Sex: Female

DRUGS (1)
  1. HIZENTRA [Suspect]
     Dosage: (50 ML 1X/WEEK)
     Dates: start: 20110623

REACTIONS (3)
  - WEIGHT INCREASED [None]
  - DEEP VEIN THROMBOSIS [None]
  - DYSPHONIA [None]
